FAERS Safety Report 8624036-X (Version None)
Quarter: 2012Q3

REPORT INFORMATION
  Report Type: 
  Country: None (occurrence: None)
  Receive Date: 20120824
  Receipt Date: 20120824
  Transmission Date: 20120928
  Serious: Yes (Other)
  Sender: FDA-Public Use
  Company Number: None

PATIENT
  Sex: Female
  Weight: 81.6475 kg

DRUGS (1)
  1. PRADAXA [Suspect]
     Indication: HAEMATURIA
     Dosage: 1 TAB PO BID
     Route: 048
     Dates: start: 20111111, end: 20120118

REACTIONS (3)
  - URETHRAL HAEMORRHAGE [None]
  - HAEMATURIA [None]
  - URINE ODOUR ABNORMAL [None]
